FAERS Safety Report 10511339 (Version 1)
Quarter: 2014Q3

REPORT INFORMATION
  Report Type: Spontaneous
  Country: US (occurrence: None)
  Receive Date: 20140924
  Receipt Date: 20140924
  Transmission Date: 20150326
  Serious: Yes (Death, Hospitalization)
  Sender: FDA-Public Use
  Company Number: 2014STPI000187

PATIENT
  Age: 65 Year
  Sex: Male

DRUGS (12)
  1. PRENISONE(PREDNISONE) [Concomitant]
  2. TIMOLOL MALEATE (TIMOLOL MALEATE) [Concomitant]
     Active Substance: TIMOLOL
  3. ETODOLAC(ETODOLAC) [Concomitant]
  4. CYCLOPHOSPHAMIDE(CYCLOPHOSPHAMIDE) [Concomitant]
  5. ASTELIN(AZELSTINE HYDROCHLLRIDE) [Concomitant]
  6. LOSARTAN(LOSARTAN POTASSIUM) [Concomitant]
  7. ETOPOSIDE(ETOPOSIDE) [Concomitant]
  8. REGLAN(METOCLOPRAMIDE HYDROCHLORIDE) [Concomitant]
  9. LIPITOR(ATORVASTATIN CALCIUM) [Concomitant]
  10. MATULANE [Suspect]
     Active Substance: PROCARBAZINE HYDROCHLORIDE
     Indication: LYMPHOMA
     Route: 048
     Dates: start: 20130721, end: 20140124
  11. ASPIRIN(ACETYLSALICYLIC ACID) [Concomitant]
     Active Substance: ASPIRIN
  12. BACTRAIM DS (SULFAMETHOXAZOLE, TRIMETHOPRIM) [Concomitant]

REACTIONS (3)
  - Hypotension [None]
  - Sepsis [None]
  - Disease progression [None]

NARRATIVE: CASE EVENT DATE: 201401
